FAERS Safety Report 17236410 (Version 4)
Quarter: 2020Q1

REPORT INFORMATION
  Report Type: Spontaneous
  Country: CA (occurrence: CA)
  Receive Date: 20200106
  Receipt Date: 20200319
  Transmission Date: 20200409
  Serious: Yes (Other)
  Sender: FDA-Public Use
  Company Number: CA-PFIZER INC-2019424108

PATIENT
  Age: 68 Year
  Sex: Male

DRUGS (13)
  1. ENTOCORT [Concomitant]
     Active Substance: BUDESONIDE
     Indication: COLITIS ULCERATIVE
     Dosage: UNK
     Route: 065
  2. ENTYVIO [Concomitant]
     Active Substance: VEDOLIZUMAB
     Indication: POUCHITIS
     Dosage: UNK
     Route: 065
     Dates: start: 201904
  3. MIDAZOLAM. [Concomitant]
     Active Substance: MIDAZOLAM
     Indication: SEDATION
     Dosage: UNK
  4. XELJANZ [Suspect]
     Active Substance: TOFACITINIB CITRATE
     Indication: POUCHITIS
     Dosage: 5 MG, 2X/DAY
     Route: 048
     Dates: start: 2019
  5. CIPRO [Concomitant]
     Active Substance: CIPROFLOXACIN HYDROCHLORIDE
     Dosage: UNK
     Route: 065
     Dates: start: 201908, end: 201909
  6. ENTYVIO [Concomitant]
     Active Substance: VEDOLIZUMAB
     Indication: COLITIS ULCERATIVE
     Dosage: UNK
     Route: 065
     Dates: start: 201904, end: 20190913
  7. ZOPICLONE [Concomitant]
     Active Substance: ZOPICLONE
     Indication: ANXIETY
     Dosage: 7.5 MG, NIGHTLY OR Q OTHER NIGHT
     Route: 065
     Dates: start: 2019
  8. BUDESONIDE. [Concomitant]
     Active Substance: BUDESONIDE
     Indication: COLITIS ULCERATIVE
     Dosage: UNK
     Route: 065
  9. FENTANYL. [Concomitant]
     Active Substance: FENTANYL
     Indication: ANALGESIC THERAPY
     Dosage: UNK
  10. ENTOCORT [Concomitant]
     Active Substance: BUDESONIDE
     Dosage: 2 DF, DAILY
  11. ENTOCORT [Concomitant]
     Active Substance: BUDESONIDE
     Dosage: 6 MG, DAILY
     Route: 048
  12. XELJANZ [Suspect]
     Active Substance: TOFACITINIB CITRATE
     Indication: COLITIS ULCERATIVE
     Dosage: 10 MG, 2X/DAY
     Route: 048
     Dates: start: 20191105, end: 2019
  13. CIPRO [Concomitant]
     Active Substance: CIPROFLOXACIN HYDROCHLORIDE
     Indication: COLITIS ULCERATIVE
     Dosage: 1 DF, ALTERNATE DAY (Q OTHER DAY)
     Route: 065
     Dates: end: 2019

REACTIONS (17)
  - Hyponatraemia [Unknown]
  - Headache [Unknown]
  - Nausea [Recovered/Resolved]
  - Red blood cell count decreased [Unknown]
  - Platelet count increased [Unknown]
  - Blood potassium increased [Unknown]
  - Blood sodium decreased [Unknown]
  - Dizziness [Unknown]
  - Diarrhoea [Unknown]
  - Polyp [Unknown]
  - Haematochezia [Unknown]
  - Red cell distribution width increased [Unknown]
  - Haemoglobin decreased [Unknown]
  - Condition aggravated [Unknown]
  - Bowel movement irregularity [Unknown]
  - C-reactive protein increased [Unknown]
  - Haematocrit decreased [Unknown]

NARRATIVE: CASE EVENT DATE: 2019
